FAERS Safety Report 23436662 (Version 2)
Quarter: 2024Q1

REPORT INFORMATION
  Report Type: Spontaneous
  Country: JP (occurrence: JP)
  Receive Date: 20240124
  Receipt Date: 20240228
  Transmission Date: 20240409
  Serious: Yes (Death, Other)
  Sender: FDA-Public Use
  Company Number: JP-GENMAB-2024-00104

PATIENT
  Age: 58 Year
  Sex: Female

DRUGS (3)
  1. EPKINLY [Suspect]
     Active Substance: EPCORITAMAB-BYSP
     Indication: Product used for unknown indication
     Dosage: 0.16 MILLIGRAM, SINGLE, CYCLE 1, DAY 1
     Dates: start: 20231221, end: 20231221
  2. EPKINLY [Suspect]
     Active Substance: EPCORITAMAB-BYSP
     Dosage: UNK, SINGLE
     Dates: start: 20231228, end: 20231228
  3. EPKINLY [Suspect]
     Active Substance: EPCORITAMAB-BYSP
     Dosage: UNK, WEEKLY
     Dates: start: 20240104, end: 20240111

REACTIONS (2)
  - Cytokine release syndrome [Recovered/Resolved]
  - Malignant neoplasm progression [Fatal]

NARRATIVE: CASE EVENT DATE: 20231223
